FAERS Safety Report 7466922-2 (Version None)
Quarter: 2011Q2

REPORT INFORMATION
  Report Type: 
  Country: None (occurrence: None)
  Receive Date: 20110428
  Receipt Date: 20110415
  Transmission Date: 20111010
  Serious: Yes (Hospitalization)
  Sender: FDA-Public Use
  Company Number: CIP10002640

PATIENT
  Age: 80 Year
  Sex: Female

DRUGS (6)
  1. VOLMAGEN (DICLOFENAC SODIUM) [Concomitant]
  2. ACTONEL [Suspect]
     Indication: OSTEOPOROSIS
     Dosage: 2.5 MG, DAILY, ORAL
     Route: 048
     Dates: start: 20070920, end: 20100421
  3. MOHRUS YUTOKU (KETOPROFEN) [Concomitant]
  4. MAGNESIUM OXIDE (MAGNESIUM OXIDE) [Concomitant]
  5. VITAMIN D	/00107901/ (ERGOCALCIFEROL) [Concomitant]
  6. ZOPICOOL (ZOPICLONE) [Concomitant]

REACTIONS (8)
  - RENAL CYST [None]
  - LIVER FUNCTION TEST ABNORMAL [None]
  - HEPATIC CYST [None]
  - ABDOMINAL PAIN [None]
  - HEPATIC CIRRHOSIS [None]
  - AUTOIMMUNE HEPATITIS [None]
  - CHOLELITHIASIS [None]
  - HEPATIC FUNCTION ABNORMAL [None]
